FAERS Safety Report 5918300-2 (Version None)
Quarter: 2008Q4

REPORT INFORMATION
  Report Type: 
  Country: None (occurrence: None)
  Receive Date: 20081010
  Receipt Date: 20080811
  Transmission Date: 20090506
  Serious: Yes (Life-Threatening, Hospitalization)
  Sender: FDA-Public Use
  Company Number: 6044941

PATIENT
  Sex: Male

DRUGS (2)
  1. CYANOKIT [Suspect]
     Indication: GAS POISONING
     Dosage: INTRAVENOUS (NOT OTHERWISE SPECIFIED)
     Route: 042
     Dates: start: 20080811
  2. CYANOKIT [Suspect]
     Indication: RESPIRATORY FUME INHALATION DISORDER
     Dosage: INTRAVENOUS (NOT OTHERWISE SPECIFIED)
     Route: 042
     Dates: start: 20080811

REACTIONS (4)
  - CARDIAC ARREST [None]
  - DIALYSIS [None]
  - DRUG TOXICITY [None]
  - RENAL FAILURE [None]
